FAERS Safety Report 8358056-X (Version None)
Quarter: 2012Q2

REPORT INFORMATION
  Report Type: 
  Country: None (occurrence: None)
  Receive Date: 20120514
  Receipt Date: 20120503
  Transmission Date: 20120825
  Serious: Yes (Hospitalization)
  Sender: FDA-Public Use
  Company Number: VE-ROCHE-1067428

PATIENT
  Sex: Female

DRUGS (4)
  1. VITAMIN B-12 [Concomitant]
  2. CALCIUM [Concomitant]
  3. XOLAIR [Suspect]
     Indication: PRODUCT USED FOR UNKNOWN INDICATION
     Dates: start: 20111001
  4. FOLIC ACID [Concomitant]

REACTIONS (1)
  - HAEMOGLOBIN DECREASED [None]
